FAERS Safety Report 6371402-1 (Version None)
Quarter: 2009Q3

REPORT INFORMATION
  Report Type: 
  Country: None (occurrence: None)
  Receive Date: 20090923
  Receipt Date: 20080425
  Transmission Date: 20100115
  Serious: No
  Sender: FDA-Public Use
  Company Number: US-ASTRAZENECA-2007UW12522

PATIENT
  Age: 643 Month
  Sex: Male
  Weight: 101.6 kg

DRUGS (24)
  1. SEROQUEL [Suspect]
     Indication: DEPRESSION
     Dosage: 100 TO 200 MG
     Route: 048
     Dates: start: 20021027
  2. SEROQUEL [Suspect]
     Indication: SCHIZOPHRENIA
     Dosage: 100 TO 200 MG
     Route: 048
     Dates: start: 20021027
  3. SEROQUEL [Suspect]
     Route: 048
     Dates: start: 20030821, end: 20030919
  4. SEROQUEL [Suspect]
     Route: 048
     Dates: start: 20030821, end: 20030919
  5. SEROQUEL [Suspect]
     Route: 048
     Dates: start: 20030901, end: 20050809
  6. SEROQUEL [Suspect]
     Route: 048
     Dates: start: 20030901, end: 20050809
  7. ZYPREXA [Concomitant]
     Dates: start: 19970101, end: 20050601
  8. ENALAPRIL MALEATE [Concomitant]
  9. ALLOPURINOL [Concomitant]
  10. GLIPIZIDE [Concomitant]
  11. SYNTHROID [Concomitant]
  12. PRAZSOIN HCL [Concomitant]
  13. SERTRALINE HCL [Concomitant]
  14. ASPIRIN [Concomitant]
  15. PAXIL [Concomitant]
  16. SIMVASTATIN [Concomitant]
  17. VARDENAFIL HYDROCHLORIDE [Concomitant]
  18. FOLIC ACID [Concomitant]
  19. COLCHICINE [Concomitant]
  20. PRAMIPEXOLE DIHYDROCHLORIDE [Concomitant]
  21. SIMETHICONE [Concomitant]
  22. THIAMINE HYDROCHLORIDE [Concomitant]
  23. MULTI-VITAMIN [Concomitant]
  24. GABAPENTIN [Concomitant]

REACTIONS (1)
  - TYPE 2 DIABETES MELLITUS [None]
